FAERS Safety Report 17164882 (Version 5)
Quarter: 2020Q4

REPORT INFORMATION
  Report Type: Spontaneous
  Country: US (occurrence: US)
  Receive Date: 20191217
  Receipt Date: 20201222
  Transmission Date: 20210113
  Serious: Yes (Other)
  Sender: FDA-Public Use
  Company Number: US-PFIZER INC-2018266223

PATIENT
  Age: 68 Year
  Sex: Male
  Weight: 71.21 kg

DRUGS (4)
  1. XELJANZ [Suspect]
     Active Substance: TOFACITINIB CITRATE
     Indication: RHEUMATOID ARTHRITIS
     Dosage: 5 MG
  2. CELEBREX [Concomitant]
     Active Substance: CELECOXIB
     Indication: RHEUMATOID ARTHRITIS
     Dosage: 200 MG, 2X/DAY
     Route: 048
  3. XELJANZ [Suspect]
     Active Substance: TOFACITINIB CITRATE
     Indication: ARTHRITIS
     Dosage: 5 MG, 2X/DAY
  4. XELJANZ [Suspect]
     Active Substance: TOFACITINIB CITRATE
     Dosage: 5 MG, 2X/DAY (ONE IN MORNING AND ONE IN AFTERNOON WITH SUPPER]
     Route: 048

REACTIONS (6)
  - Intentional product misuse [Unknown]
  - Suspected product tampering [Unknown]
  - Systemic lupus erythematosus [Unknown]
  - COVID-19 [Unknown]
  - Poor quality product administered [Unknown]
  - Therapeutic response unexpected [Unknown]
